FAERS Safety Report 25027885 (Version 3)
Quarter: 2025Q3

REPORT INFORMATION
  Report Type: Spontaneous
  Country: US (occurrence: US)
  Receive Date: 20250301
  Receipt Date: 20250716
  Transmission Date: 20251020
  Serious: No
  Sender: SANOFI AVENTIS
  Company Number: US-SA-2025SA057771

PATIENT
  Age: 26 Year
  Sex: Female

DRUGS (2)
  1. DUPIXENT [Suspect]
     Active Substance: DUPILUMAB
     Indication: Dermatitis atopic
     Dosage: 300 MG, QOW
     Route: 058
     Dates: start: 202412
  2. SPIRONOLACTONE [Concomitant]
     Active Substance: SPIRONOLACTONE

REACTIONS (9)
  - Alopecia [Unknown]
  - Eczema [Unknown]
  - Sensitive skin [Recovering/Resolving]
  - Skin burning sensation [Recovering/Resolving]
  - Dry skin [Recovering/Resolving]
  - Erythema [Recovering/Resolving]
  - Dermatitis atopic [Unknown]
  - Dry skin [Unknown]
  - Rash macular [Unknown]

NARRATIVE: CASE EVENT DATE: 20250101
